FAERS Safety Report 25901122 (Version 6)
Quarter: 2025Q4

REPORT INFORMATION
  Report Type: Spontaneous
  Country: US (occurrence: US)
  Receive Date: 20251009
  Receipt Date: 20251209
  Transmission Date: 20260118
  Serious: No
  Sender: MALLINCKRODT
  Company Number: US-MALLINCKRODT-MNK202506188

PATIENT
  Sex: Male

DRUGS (14)
  1. CORTICOTROPIN [Suspect]
     Active Substance: CORTICOTROPIN
     Indication: Ankylosing spondylitis
     Route: 058
  2. CORTICOTROPIN [Suspect]
     Active Substance: CORTICOTROPIN
     Indication: Arthritis
     Route: 058
     Dates: start: 202507, end: 2025
  3. CORTICOTROPIN [Suspect]
     Active Substance: CORTICOTROPIN
     Route: 058
     Dates: start: 2025
  4. VOLTAREN [Concomitant]
     Active Substance: DICLOFENAC SODIUM
     Indication: Product used for unknown indication
     Dosage: UNKNOWN
  5. VOLTAREN [Concomitant]
     Active Substance: DICLOFENAC SODIUM
     Dosage: UNKNOWN (DOSE DECREASED)
  6. RINVOQ [Concomitant]
     Active Substance: UPADACITINIB
     Dosage: UNKNOWN
  7. PREDNISONE [Concomitant]
     Active Substance: PREDNISONE
  8. VITAMINS [Concomitant]
     Active Substance: VITAMINS
     Dosage: UNKNOWN
  9. FINASTERIDE [Concomitant]
     Active Substance: FINASTERIDE
     Dosage: UNKNOWN
  10. FISH OIL [Concomitant]
     Active Substance: FISH OIL
     Dosage: UNKNOWN
  11. VITAMIN D3 [Concomitant]
     Active Substance: CHOLECALCIFEROL
     Dosage: UNKNOWN
  12. LISINOPRIL [Concomitant]
     Active Substance: LISINOPRIL
     Dosage: UNKNOWN
  13. TAMSULOSIN HYDROCHLORIDE [Concomitant]
     Active Substance: TAMSULOSIN HYDROCHLORIDE
     Dosage: UNKNOWN
  14. AMLODIPINE [Concomitant]
     Active Substance: AMLODIPINE BESYLATE

REACTIONS (2)
  - Arthralgia [Unknown]
  - Sensitivity to weather change [Unknown]
